FAERS Safety Report 7600461-0 (Version None)
Quarter: 2011Q2

REPORT INFORMATION
  Report Type: 
  Country: None (occurrence: None)
  Receive Date: 20110629
  Receipt Date: 20110615
  Transmission Date: 20111010
  Serious: Yes (Other)
  Sender: FDA-Public Use
  Company Number: FK201101233

PATIENT
  Age: 48 Year
  Sex: Female

DRUGS (1)
  1. CISPLATIN [Suspect]
     Dosage: 50 MG, INTRAVENOUS (NOT OTHERWISE SPECIFIED)
     Route: 042

REACTIONS (5)
  - OXYGEN SATURATION DECREASED [None]
  - ERYTHEMA [None]
  - COUGH [None]
  - NAUSEA [None]
  - BLOOD PRESSURE INCREASED [None]
